FAERS Safety Report 19729398 (Version 1)
Quarter: 2021Q3

REPORT INFORMATION
  Report Type: Spontaneous
  Country: DE (occurrence: DE)
  Receive Date: 20210820
  Receipt Date: 20210820
  Transmission Date: 20211014
  Serious: Yes (Hospitalization, Other)
  Sender: FDA-Public Use
  Company Number: DE-VALIDUS PHARMACEUTICALS LLC-DE-VDP-2021-000349

PATIENT
  Age: 88 Year
  Sex: Male

DRUGS (11)
  1. SITAGLIPTIN [Suspect]
     Active Substance: SITAGLIPTIN
     Dosage: 25 MILLIGRAM, 1?0?0?0, TABLETS;
     Route: 048
  2. BENSERAZIDE;LEVODOPA [Suspect]
     Active Substance: BENSERAZIDE\LEVODOPA
     Dosage: 25 | 100 MG, 0?0?0?1,SUSTAINED?RELEASE CAPSULES
     Route: 048
  3. FUROSEMIDE. [Suspect]
     Active Substance: FUROSEMIDE
     Dosage: 40 MILLIGRAM, 1?1?0?0, TABLETS
     Route: 048
  4. PANTOPRAZOL [PANTOPRAZOLE] [Concomitant]
     Active Substance: PANTOPRAZOLE
     Route: 065
  5. MIRTAZAPIN [Concomitant]
     Active Substance: MIRTAZAPINE
     Route: 065
  6. KALIUMCITRAT [Concomitant]
     Active Substance: POTASSIUM CITRATE
     Route: 065
  7. METAMIZOLE SALT NOT SPECIFIED [Suspect]
     Active Substance: METAMIZOLE
     Dosage: 500 MILLIGRAM, 1?0?1?0, TABLETS
     Route: 048
  8. RAMIPRIL. [Suspect]
     Active Substance: RAMIPRIL
     Dosage: 5 MILLIGRAM, 0.5?0?0?0, TABLETS
     Route: 048
  9. PREGABALIN. [Concomitant]
     Active Substance: PREGABALIN
     Route: 065
  10. APIXABAN [Concomitant]
     Active Substance: APIXABAN
     Route: 065
  11. BISOPROLOL SALT NOT SPECIFIED [Suspect]
     Active Substance: BISOPROLOL
     Dosage: 2.5 MILLIGRAM, 3?0?0?0, TABLETS;
     Route: 048

REACTIONS (3)
  - Pain [Unknown]
  - Chest pain [Unknown]
  - Pneumonia [Unknown]
